FAERS Safety Report 9906597 (Version 2)
Quarter: 2014Q2

REPORT INFORMATION
  Report Type: Spontaneous
  Country: IT (occurrence: IT)
  Receive Date: 20140218
  Receipt Date: 20140430
  Transmission Date: 20141212
  Serious: Yes (Hospitalization)
  Sender: FDA-Public Use
  Company Number: IT-ASTRAZENECA-2014SE10091

PATIENT
  Age: 27917 Day
  Sex: Female

DRUGS (3)
  1. SEROQUEL [Suspect]
     Indication: DEPRESSION
     Route: 048
     Dates: start: 20140113, end: 20140122
  2. CYMBALTA [Concomitant]
  3. TALOFEN [Concomitant]

REACTIONS (1)
  - Hyponatraemic syndrome [Recovered/Resolved]
